FAERS Safety Report 5238888-7 (Version None)
Quarter: 2007Q1

REPORT INFORMATION
  Report Type: 
  Country: None (occurrence: None)
  Receive Date: 20070215
  Receipt Date: 20070205
  Transmission Date: 20070707
  Serious: Yes (Other)
  Sender: FDA-Public Use
  Company Number: FR-PFIZER INC-2007010370

PATIENT
  Sex: Male

DRUGS (8)
  1. TAHOR [Suspect]
     Indication: MYOCARDIAL INFARCTION
  2. GRAPEFRUIT JUICE [Interacting]
  3. KARDEGIC [Concomitant]
  4. PLAVIX [Concomitant]
  5. SECTRAL [Concomitant]
  6. DOMPERIDONE [Concomitant]
  7. PERINDOPRIL ERBUMINE [Concomitant]
  8. OMEPRAZOLE [Concomitant]

REACTIONS (5)
  - CALCIFICATION OF MUSCLE [None]
  - DRUG INTERACTION [None]
  - INTERVERTEBRAL DISC CALCIFICATION [None]
  - MYALGIA [None]
  - TENDON CALCIFICATION [None]
